FAERS Safety Report 19679872 (Version 3)
Quarter: 2021Q3

REPORT INFORMATION
  Report Type: Spontaneous
  Country: GB (occurrence: GB)
  Receive Date: 20210810
  Receipt Date: 20210902
  Transmission Date: 20211014
  Serious: Yes (Hospitalization, Other)
  Sender: FDA-Public Use
  Company Number: NVSC2021GB158657

PATIENT
  Age: 75 Year
  Sex: Male

DRUGS (2)
  1. GABAPENTIN. [Suspect]
     Active Substance: GABAPENTIN
     Indication: PRODUCT USED FOR UNKNOWN INDICATION
     Dosage: UNK
     Route: 048
  2. DUODOPA [Suspect]
     Active Substance: CARBIDOPA\LEVODOPA
     Indication: PARKINSON^S DISEASE
     Dosage: MORNING DOSE:10.0MLS ,CONTINUOUS RATE: 2.3MLS/HR ,EXTRA DOSE :1.0MLS
     Route: 050
     Dates: start: 202106, end: 20210716

REACTIONS (16)
  - Confusional state [Not Recovered/Not Resolved]
  - Device dislocation [Not Recovered/Not Resolved]
  - Vomiting [Not Recovered/Not Resolved]
  - Constipation [Unknown]
  - Muscle rigidity [Unknown]
  - Syncope [Unknown]
  - Diabetes mellitus [Unknown]
  - Medical device site swelling [Unknown]
  - Loss of personal independence in daily activities [Unknown]
  - Mobility decreased [Unknown]
  - Diarrhoea [Unknown]
  - Fall [Unknown]
  - Accidental overdose [Unknown]
  - Dementia [Unknown]
  - Cognitive disorder [Unknown]
  - Hallucination [Unknown]

NARRATIVE: CASE EVENT DATE: 2021
